FAERS Safety Report 6183856-4 (Version None)
Quarter: 2009Q2

REPORT INFORMATION
  Report Type: 
  Country: None (occurrence: None)
  Receive Date: 20090508
  Receipt Date: 20090427
  Transmission Date: 20091009
  Serious: Yes (Disabling)
  Sender: FDA-Public Use
  Company Number: JP-PFIZER INC-2009199137

PATIENT
  Age: 76 Year

DRUGS (11)
  1. CAMPTOSAR [Suspect]
     Indication: COLON CANCER
     Dosage: 115.4 MG/M2, (180 MG)
     Route: 041
     Dates: start: 20090218, end: 20090311
  2. FLUOROURACIL [Concomitant]
     Indication: COLON CANCER
     Dosage: 320.5 MG/M2, (500 MG), IN BOLUS
     Route: 040
     Dates: start: 20090218, end: 20090311
  3. FLUOROURACIL [Concomitant]
     Dosage: 1923.1 MG/M2/D1-2 (3000 MG/BODY/D1-2) AS CONTINUS INFUSION
     Route: 041
     Dates: start: 20090218, end: 20090311
  4. CALCIUM LEVOFOLINATE [Concomitant]
     Indication: COLON CANCER
     Dosage: 160.3 MG/M2, (250 MG)
     Route: 041
     Dates: start: 20090218, end: 20090311
  5. KYTRIL [Concomitant]
     Indication: PREMEDICATION
     Dosage: 3 MG, UNK
     Route: 041
     Dates: start: 20090218, end: 20090311
  6. DECADRON #1 [Concomitant]
     Indication: PREMEDICATION
     Dosage: 4 MG, UNK
     Route: 041
     Dates: start: 20090218, end: 20090311
  7. ADALAT [Concomitant]
     Indication: HYPERTENSION
     Dosage: 10 MG, 2X/DAY
     Route: 048
     Dates: end: 20090317
  8. FAMOTIDINE [Concomitant]
     Indication: GASTRITIS
     Dosage: 10 MG, 2X/DAY
     Route: 048
     Dates: end: 20090317
  9. MAGNESIUM OXIDE [Concomitant]
     Indication: CONSTIPATION
     Dosage: 500 MG, 3X/DAY
     Route: 048
     Dates: start: 20090303, end: 20090317
  10. ZOFRAN [Concomitant]
     Indication: PROPHYLAXIS OF NAUSEA AND VOMITING
     Dosage: 4 MG, UNK
     Route: 048
     Dates: start: 20090312, end: 20090313
  11. DECADRON [Concomitant]
     Indication: PROPHYLAXIS OF NAUSEA AND VOMITING
     Dosage: 2 MG, 2X/DAY
     Route: 048
     Dates: start: 20090312, end: 20090313

REACTIONS (2)
  - INTESTINAL PERFORATION [None]
  - PNEUMATOSIS INTESTINALIS [None]
